FAERS Safety Report 18004095 (Version 1)
Quarter: 2020Q3

REPORT INFORMATION
  Report Type: Spontaneous
  Country: US (occurrence: US)
  Receive Date: 20200709
  Receipt Date: 20200709
  Transmission Date: 20201103
  Serious: No
  Sender: FDA-Public Use
  Company Number: US-ASTELLAS-2020US012709

PATIENT
  Age: 81 Year
  Sex: Male

DRUGS (1)
  1. MYRBETRIQ [Suspect]
     Active Substance: MIRABEGRON
     Indication: PRODUCT USED FOR UNKNOWN INDICATION
     Route: 065
     Dates: start: 20200403, end: 20200404

REACTIONS (3)
  - Dysuria [Recovering/Resolving]
  - Blood urine present [Recovering/Resolving]
  - Urinary sediment [Recovering/Resolving]

NARRATIVE: CASE EVENT DATE: 20200405
